FAERS Safety Report 4344768-1 (Version None)
Quarter: 2004Q2

REPORT INFORMATION
  Report Type: 
  Country: None (occurrence: None)
  Receive Date: 20040423
  Receipt Date: 20030603
  Transmission Date: 20050107
  Serious: No
  Sender: FDA-Public Use
  Company Number: US-GLAXOSMITHKLINE-A0410785A

PATIENT
  Age: 36 Year
  Sex: Male

DRUGS (7)
  1. LEUKERAN [Suspect]
     Route: 048
  2. SONATA [Concomitant]
     Route: 048
  3. LORAZEPAM [Concomitant]
     Route: 048
  4. FLEXERIL [Concomitant]
     Route: 048
  5. PREVACID [Concomitant]
     Route: 048
  6. LISINOPRIL [Concomitant]
     Route: 048
  7. PAXIL [Concomitant]
     Route: 048

REACTIONS (1)
  - ALOPECIA [None]
